FAERS Safety Report 7418956-1 (Version None)
Quarter: 2011Q2

REPORT INFORMATION
  Report Type: 
  Country: None (occurrence: None)
  Receive Date: 20110415
  Receipt Date: 20110403
  Transmission Date: 20111010
  Serious: Yes (Hospitalization)
  Sender: FDA-Public Use
  Company Number: US-BAYER-201033779NA

PATIENT
  Age: 35 Year
  Sex: Female
  Weight: 131.52 kg

DRUGS (4)
  1. DILTIAZEM [Concomitant]
     Dosage: 180 MG, UNK
     Dates: start: 20010101
  2. YAZ [Suspect]
     Indication: ACNE
     Dosage: UNK
     Dates: start: 20020101, end: 20071201
  3. YASMIN [Suspect]
     Indication: ACNE
     Dosage: UNK
     Dates: start: 20020101, end: 20071201
  4. HYDROCHLOROTHIAZIDE [Concomitant]

REACTIONS (3)
  - CEREBROVASCULAR ACCIDENT [None]
  - CEREBRAL INFARCTION [None]
  - PULMONARY EMBOLISM [None]
